FAERS Safety Report 8782303 (Version 1)
Quarter: 2012Q4

REPORT INFORMATION
  Report Type: Report from Study
  Country: US (occurrence: US)
  Receive Date: 20120913
  Receipt Date: 20120913
  Transmission Date: 20130627
  Serious: Yes (Other)
  Sender: FDA-Public Use
  Company Number: US-JNJFOC-20120903064

PATIENT
  Sex: Male
  Weight: 81.65 kg

DRUGS (5)
  1. XARELTO [Suspect]
     Indication: HEART VALVE INCOMPETENCE
     Route: 048
     Dates: start: 201202
  2. XARELTO [Suspect]
     Indication: CARDIAC FAILURE CONGESTIVE
     Route: 048
     Dates: start: 201202
  3. ALLOPURINOL [Concomitant]
     Indication: GOUT
  4. ALBUTEROL [Concomitant]
     Indication: RESPIRATORY DISORDER
  5. ALBUTEROL [Concomitant]
     Indication: MULTIPLE ALLERGIES

REACTIONS (1)
  - Faeces discoloured [Not Recovered/Not Resolved]
